FAERS Safety Report 9495441 (Version 1)
Quarter: 2013Q3

REPORT INFORMATION
  Report Type: Spontaneous
  Country: US (occurrence: US)
  Receive Date: 20130903
  Receipt Date: 20130903
  Transmission Date: 20140515
  Serious: No
  Sender: FDA-Public Use
  Company Number: US-PFIZER INC-2013248537

PATIENT
  Age: 62 Year
  Sex: Female

DRUGS (3)
  1. SUTENT [Suspect]
     Indication: SARCOMA
     Dosage: UNK
  2. SUTENT [Suspect]
     Indication: GASTROINTESTINAL STROMAL TUMOUR
     Dosage: 37.5 MG, UNK
     Dates: start: 20130419
  3. SUTENT [Suspect]
     Dosage: 37.5 MG, UNK
     Dates: start: 2013

REACTIONS (9)
  - Hypertension [Unknown]
  - Skin reaction [Unknown]
  - Oral pain [Unknown]
  - Stomatitis [Unknown]
  - Dysgeusia [Unknown]
  - Limb discomfort [Unknown]
  - Hyperkeratosis [Unknown]
  - Diarrhoea [Unknown]
  - Constipation [Unknown]
